FAERS Safety Report 12100737 (Version 3)
Quarter: 2016Q1

REPORT INFORMATION
  Report Type: Report from Study
  Country: US (occurrence: US)
  Receive Date: 20160222
  Receipt Date: 20160304
  Transmission Date: 20160526
  Serious: Yes (Hospitalization, Other)
  Sender: FDA-Public Use
  Company Number: US-ABBVIE-16K-163-1561266-00

PATIENT
  Age: 15 Year
  Sex: Female
  Weight: 63.56 kg

DRUGS (11)
  1. IRON [Concomitant]
     Active Substance: IRON
     Indication: PRODUCT USED FOR UNKNOWN INDICATION
  2. REXULTI [Concomitant]
     Active Substance: BREXPIPRAZOLE
     Indication: PRODUCT USED FOR UNKNOWN INDICATION
  3. VITAMIN A [Concomitant]
     Active Substance: VITAMIN A
     Indication: PRODUCT USED FOR UNKNOWN INDICATION
  4. ZOFRAN [Concomitant]
     Active Substance: ONDANSETRON HYDROCHLORIDE
     Indication: PRODUCT USED FOR UNKNOWN INDICATION
  5. HUMIRA [Suspect]
     Active Substance: ADALIMUMAB
     Indication: COLITIS ULCERATIVE
     Route: 058
     Dates: start: 2015, end: 2015
  6. HUMIRA [Suspect]
     Active Substance: ADALIMUMAB
     Dosage: TWO WEEKS LATER
     Route: 058
     Dates: start: 2015, end: 2015
  7. MILK OF MAGNESIA [Concomitant]
     Active Substance: MAGNESIUM HYDROXIDE
     Indication: PRODUCT USED FOR UNKNOWN INDICATION
  8. IRON [Concomitant]
     Active Substance: IRON
     Indication: PRODUCT USED FOR UNKNOWN INDICATION
  9. METHOTREXATE [Concomitant]
     Active Substance: METHOTREXATE
     Indication: COLITIS ULCERATIVE
  10. CELEXA [Concomitant]
     Active Substance: CITALOPRAM HYDROBROMIDE
     Indication: PRODUCT USED FOR UNKNOWN INDICATION
  11. HUMIRA [Suspect]
     Active Substance: ADALIMUMAB
     Indication: COLITIS ULCERATIVE
     Route: 058
     Dates: start: 2011, end: 2013

REACTIONS (31)
  - Dizziness [Recovered/Resolved]
  - Folliculitis [Recovering/Resolving]
  - Pulmonary mass [Not Recovered/Not Resolved]
  - Constipation [Recovering/Resolving]
  - Cardiac murmur [Not Recovered/Not Resolved]
  - Splenic vein thrombosis [Not Recovered/Not Resolved]
  - Pallor [Recovering/Resolving]
  - Pyrexia [Recovered/Resolved]
  - Vomiting [Recovering/Resolving]
  - Blood iron decreased [Unknown]
  - Ileus [Recovered/Resolved]
  - Malnutrition [Recovering/Resolving]
  - Iron deficiency anaemia [Not Recovered/Not Resolved]
  - Proteinuria [Not Recovered/Not Resolved]
  - Haematuria [Recovering/Resolving]
  - Rash [Recovered/Resolved]
  - Colitis [Recovering/Resolving]
  - White blood cell count increased [Recovered/Resolved]
  - Platelet count increased [Not Recovered/Not Resolved]
  - Cough [Recovered/Resolved]
  - Normochromic normocytic anaemia [Not Recovered/Not Resolved]
  - Intestinal dilatation [Not Recovered/Not Resolved]
  - Atelectasis [Not Recovered/Not Resolved]
  - Stoma site abscess [Recovering/Resolving]
  - Pyrexia [Recovering/Resolving]
  - Colitis ulcerative [Recovered/Resolved with Sequelae]
  - Injection site pain [Recovered/Resolved]
  - Rectal haemorrhage [Recovering/Resolving]
  - Nausea [Recovering/Resolving]
  - Sinus tachycardia [Recovering/Resolving]
  - Palpitations [Recovering/Resolving]

NARRATIVE: CASE EVENT DATE: 2011
